FAERS Safety Report 8902438 (Version 3)
Quarter: 2012Q4

REPORT INFORMATION
  Report Type: 
  Country: AU (occurrence: AU)
  Receive Date: 20121112
  Receipt Date: 20121231
  Transmission Date: 20130627
  Serious: Yes (Hospitalization, Other)
  Sender: FDA-Public Use
  Company Number: AU-JNJFOC-20121101913

PATIENT
  Age: 87 Year
  Sex: Male

DRUGS (5)
  1. ZYTIGA [Suspect]
     Indication: PROSTATE CANCER METASTATIC
     Route: 048
     Dates: start: 201208
  2. ZYTIGA [Suspect]
     Indication: PROSTATE CANCER METASTATIC
     Route: 048
     Dates: end: 201209
  3. ZYTIGA [Suspect]
     Indication: PROSTATE CANCER METASTATIC
     Route: 048
     Dates: end: 201210
  4. SPIROLACTONE [Concomitant]
     Indication: CARDIAC FAILURE
     Route: 065
  5. DEXAMETHAZON [Concomitant]
     Indication: PROSTATE CANCER
     Route: 065
     Dates: start: 201207

REACTIONS (2)
  - Blood potassium decreased [Unknown]
  - Prostatic specific antigen increased [Not Recovered/Not Resolved]
